FAERS Safety Report 22123652 (Version 1)
Quarter: 2023Q1

REPORT INFORMATION
  Report Type: Spontaneous
  Country: US (occurrence: None)
  Receive Date: 20230322
  Receipt Date: 20230322
  Transmission Date: 20230418
  Serious: No
  Sender: FDA-Public Use
  Company Number: 2023A045450

PATIENT
  Sex: Male
  Weight: 76.2 kg

DRUGS (2)
  1. PULMICORT FLEXHALER [Suspect]
     Active Substance: BUDESONIDE
     Indication: Asthma
     Route: 055
  2. PULMICORT FLEXHALER [Suspect]
     Active Substance: BUDESONIDE
     Indication: Asthma
     Route: 055
     Dates: start: 202210

REACTIONS (7)
  - Dyspnoea [Recovering/Resolving]
  - Dysphonia [Unknown]
  - Device use issue [Unknown]
  - Incorrect dose administered by device [Unknown]
  - Drug ineffective [Unknown]
  - Off label use [Unknown]
  - Device delivery system issue [Unknown]
